FAERS Safety Report 22057743 (Version 3)
Quarter: 2024Q3

REPORT INFORMATION
  Report Type: Spontaneous
  Country: SA (occurrence: SA)
  Receive Date: 20230303
  Receipt Date: 20240913
  Transmission Date: 20241017
  Serious: Yes (Death, Hospitalization)
  Sender: NOVARTIS
  Company Number: SA-002147023-NVSC2023SA048672

PATIENT
  Age: 2 Year
  Sex: Female
  Weight: 6 kg

DRUGS (2)
  1. ONASEMNOGENE ABEPARVOVEC [Suspect]
     Active Substance: ONASEMNOGENE ABEPARVOVEC
     Indication: Spinal muscular atrophy
     Dosage: UNK, ONCE/SINGLE (ADMINISTRATED AS ONE TIME, SINGLE  IV INFUSION (33 ML BASED ON 6 KG WEIGHT)
     Route: 042
     Dates: start: 20210809, end: 20210809
  2. ONASEMNOGENE ABEPARVOVEC [Suspect]
     Active Substance: ONASEMNOGENE ABEPARVOVEC
     Dosage: UNK, ONCE/SINGLE (ADMINISTRATED AS ONE TIME, SINGLE  IV INFUSION (33 ML BASED ON 6 KG WEIGHT)
     Route: 042
     Dates: start: 20210809, end: 20210809

REACTIONS (1)
  - Respiratory distress [Fatal]

NARRATIVE: CASE EVENT DATE: 20230224
